FAERS Safety Report 8821454 (Version 1)
Quarter: 2012Q4

REPORT INFORMATION
  Report Type: 
  Country: US (occurrence: US)
  Receive Date: 20121002
  Receipt Date: 20121002
  Transmission Date: 20130627
  Serious: Yes (Other)
  Sender: FDA-Public Use
  Company Number: US-ROCHE-1134304

PATIENT
  Sex: Male

DRUGS (10)
  1. RITUXAN [Suspect]
     Indication: CHRONIC LYMPHOCYTIC LEUKAEMIA
     Route: 065
  2. SOLU-MEDROL [Concomitant]
     Route: 065
  3. SOLU-MEDROL [Concomitant]
     Route: 065
  4. SOLU-MEDROL [Concomitant]
     Route: 040
  5. SOLU-MEDROL [Concomitant]
     Route: 065
  6. SOLU-MEDROL [Concomitant]
     Route: 065
  7. CYTOXAN [Concomitant]
     Route: 065
  8. VINCRISTINE [Concomitant]
     Route: 065
  9. KYTRIL [Concomitant]
     Route: 065
  10. PROCRIT [Concomitant]
     Route: 065

REACTIONS (9)
  - Anaemia haemolytic autoimmune [Unknown]
  - Conjunctivitis [Unknown]
  - Asthenia [Unknown]
  - Fatigue [Unknown]
  - Dyspnoea [Unknown]
  - Back pain [Unknown]
  - Jaundice [Unknown]
  - Emotional distress [Unknown]
  - Ocular icterus [Unknown]
